FAERS Safety Report 5947608-X (Version None)
Quarter: 2008Q4

REPORT INFORMATION
  Report Type: 
  Country: None (occurrence: None)
  Receive Date: 20081107
  Receipt Date: 20080916
  Transmission Date: 20090506
  Serious: Yes (Life-Threatening)
  Sender: FDA-Public Use
  Company Number: 14549

PATIENT
  Age: 42 Year
  Sex: Male

DRUGS (1)
  1. MORPHINE SULFATE [Suspect]
     Indication: MIGRAINE
     Dosage: 60MG  TWICE DAILY  ORAL
     Route: 048

REACTIONS (1)
  - CONVULSION [None]
